FAERS Safety Report 20237129 (Version 1)
Quarter: 2021Q4

REPORT INFORMATION
  Report Type: Spontaneous
  Country: GB (occurrence: GB)
  Receive Date: 20211228
  Receipt Date: 20211228
  Transmission Date: 20220303
  Serious: Yes (Hospitalization)
  Sender: FDA-Public Use
  Company Number: GB-MYLANLABS-2021M1089518

PATIENT
  Age: 60 Year
  Sex: Male
  Weight: 92.6 kg

DRUGS (6)
  1. CLOZARIL [Suspect]
     Active Substance: CLOZAPINE
     Indication: Schizophrenia
     Dosage: 150 MG MANE, 200 MG NOCTE
     Route: 048
     Dates: start: 20040130, end: 202111
  2. TOLTERODINE [Concomitant]
     Active Substance: TOLTERODINE
     Dosage: 4 MILLIGRAM, QD
     Route: 048
  3. VALPROATE SODIUM [Concomitant]
     Active Substance: VALPROATE SODIUM
     Indication: Seizure prophylaxis
     Dosage: 400 MILLIGRAM, BID
     Route: 048
  4. MIRTAZAPINE [Concomitant]
     Active Substance: MIRTAZAPINE
     Indication: Depressed mood
     Dosage: 30 MILLIGRAM, PM
     Route: 048
  5. CODEINE PHOSPHATE [Concomitant]
     Active Substance: CODEINE PHOSPHATE
     Indication: Pain
     Dosage: 15-30 MG QDS PRN
     Route: 048
  6. LACTULOSE [Concomitant]
     Active Substance: LACTULOSE
     Indication: Constipation
     Dosage: 5-15 ML
     Route: 048

REACTIONS (3)
  - Rectal haemorrhage [Recovered/Resolved]
  - Ileus paralytic [Recovered/Resolved]
  - Colitis [Recovered/Resolved]

NARRATIVE: CASE EVENT DATE: 20201001
